FAERS Safety Report 8603375-2 (Version None)
Quarter: 2012Q3

REPORT INFORMATION
  Report Type: 
  Country: None (occurrence: None)
  Receive Date: 20120806
  Receipt Date: 20120725
  Transmission Date: 20120928
  Serious: Yes (Other)
  Sender: FDA-Public Use
  Company Number: KAD201207-000402

PATIENT
  Age: 62 Year
  Sex: Male
  Weight: 62.62 kg

DRUGS (5)
  1. PEGASYS [Suspect]
     Indication: HEPATITIS C
     Dosage: 180 MCG, WEEKLY, SUBCUTANEOUS
     Route: 058
     Dates: start: 20111014, end: 20120627
  2. RIBAVIRIN [Suspect]
     Indication: HEPATITIS C
     Dosage: 1000 MG, 600 MG IN MORNING, 400 MG IN EVENING, ORAL, DOSE REDUCED TO HALF
     Route: 048
     Dates: start: 20111014
  3. RIBAVIRIN [Suspect]
     Indication: HEPATITIS C
     Dosage: 1000 MG, 600 MG IN MORNING, 400 MG IN EVENING, ORAL, DOSE REDUCED TO HALF
     Route: 048
     Dates: end: 20120627
  4. WELLBUTRIN [Concomitant]
  5. INCIVEK [Suspect]
     Indication: HEPATITIS C
     Dosage: 375 MG, 2 TABLETS EVERY 8 HOURS, ORAL
     Route: 048
     Dates: start: 20111014, end: 20120627

REACTIONS (7)
  - HAEMOGLOBIN DECREASED [None]
  - FATIGUE [None]
  - MUSCLE SPASMS [None]
  - WEIGHT DECREASED [None]
  - ALANINE AMINOTRANSFERASE INCREASED [None]
  - ASPARTATE AMINOTRANSFERASE INCREASED [None]
  - INSOMNIA [None]
